FAERS Safety Report 18064394 (Version 1)
Quarter: 2020Q3

REPORT INFORMATION
  Report Type: Spontaneous
  Country: US (occurrence: US)
  Receive Date: 20200723
  Receipt Date: 20200723
  Transmission Date: 20201103
  Serious: No
  Sender: FDA-Public Use
  Company Number: None

PATIENT
  Age: 55 Year
  Sex: Male

DRUGS (1)
  1. ROSUVASTATIN TAB 10MG [Suspect]
     Active Substance: ROSUVASTATIN
     Route: 048
     Dates: start: 201701, end: 201707

REACTIONS (3)
  - Muscle fatigue [None]
  - Gait inability [None]
  - Loss of personal independence in daily activities [None]

NARRATIVE: CASE EVENT DATE: 20170701
